FAERS Safety Report 23760910 (Version 1)
Quarter: 2024Q2

REPORT INFORMATION
  Report Type: Report from Study
  Country: US (occurrence: None)
  Receive Date: 20240419
  Receipt Date: 20240419
  Transmission Date: 20240715
  Serious: Yes (Other)
  Sender: FDA-Public Use
  Company Number: 2024A087710

PATIENT
  Age: 22106 Day
  Sex: Female
  Weight: 55 kg

DRUGS (1)
  1. TRUQAP [Suspect]
     Active Substance: CAPIVASERTIB
     Indication: Breast cancer female
     Route: 048
     Dates: start: 20240318

REACTIONS (3)
  - Hepatic enzyme increased [Recovering/Resolving]
  - Urinary tract infection [Recovering/Resolving]
  - Protein urine present [Recovering/Resolving]

NARRATIVE: CASE EVENT DATE: 20240403
